FAERS Safety Report 6187078-2 (Version None)
Quarter: 2009Q2

REPORT INFORMATION
  Report Type: 
  Country: None (occurrence: None)
  Receive Date: 20090512
  Receipt Date: 20090504
  Transmission Date: 20091009
  Serious: Yes (Life-Threatening, Hospitalization, Other)
  Sender: FDA-Public Use
  Company Number: US-ELI_LILLY_AND_COMPANY-US200905000754

PATIENT
  Sex: Female

DRUGS (7)
  1. CYMBALTA [Suspect]
     Indication: DEPRESSION
     Dosage: 30 MG, DAILY (1/D)
     Dates: start: 20090303, end: 20090401
  2. NEURONTIN [Concomitant]
  3. IMITREX [Concomitant]
  4. THYROID TAB [Concomitant]
  5. CORTISOL [Concomitant]
  6. AMBIEN [Concomitant]
     Indication: SLEEP DISORDER
  7. VICODIN [Concomitant]
     Indication: INTERVERTEBRAL DISC PROTRUSION

REACTIONS (7)
  - APHASIA [None]
  - COMA [None]
  - CONVULSION [None]
  - DELIRIUM [None]
  - DISTURBANCE IN ATTENTION [None]
  - RESPIRATORY ARREST [None]
  - SEROTONIN SYNDROME [None]
